FAERS Safety Report 12897519 (Version 1)
Quarter: 2016Q4

REPORT INFORMATION
  Report Type: Spontaneous
  Country: PL (occurrence: PL)
  Receive Date: 20161031
  Receipt Date: 20161031
  Transmission Date: 20170207
  Serious: Yes (Hospitalization)
  Sender: FDA-Public Use
  Company Number: PL-G+W LABS-GW2016PL000157

PATIENT

DRUGS (8)
  1. PHENIRAMINE [Suspect]
     Active Substance: PHENIRAMINE
     Indication: MALAISE
     Dosage: UNK, SINGLE
  2. PHENIRAMINE [Suspect]
     Active Substance: PHENIRAMINE
     Indication: CHILLS
  3. SULFASALAZINE. [Suspect]
     Active Substance: SULFASALAZINE
     Indication: RHEUMATOID ARTHRITIS
     Dosage: UNK
     Dates: start: 2012
  4. ACETAMINOPHEN. [Suspect]
     Active Substance: ACETAMINOPHEN
     Indication: MALAISE
     Dosage: UNK, SINGLE
  5. PHENYLEPHRINE [Suspect]
     Active Substance: PHENYLEPHRINE\PHENYLEPHRINE HYDROCHLORIDE
     Indication: MALAISE
     Dosage: UNK, SINGLE
  6. ETANERCEPT [Concomitant]
     Active Substance: ETANERCEPT
     Indication: RHEUMATOID ARTHRITIS
     Dosage: UNK
     Dates: start: 2012
  7. ACETAMINOPHEN. [Suspect]
     Active Substance: ACETAMINOPHEN
     Indication: CHILLS
  8. PHENYLEPHRINE [Suspect]
     Active Substance: PHENYLEPHRINE\PHENYLEPHRINE HYDROCHLORIDE
     Indication: CHILLS

REACTIONS (1)
  - Stevens-Johnson syndrome [Recovered/Resolved]
